FAERS Safety Report 26152681 (Version 1)
Quarter: 2025Q4

REPORT INFORMATION
  Report Type: Other
  Country: CN (occurrence: CN)
  Receive Date: 20251214
  Receipt Date: 20251214
  Transmission Date: 20260118
  Serious: Yes (Life-Threatening, Hospitalization, Other)
  Sender: ANI
  Company Number: CN-ANIPHARMA-035519

PATIENT
  Age: 64 Year
  Sex: Female

DRUGS (1)
  1. VANCOMYCIN [Suspect]
     Active Substance: VANCOMYCIN
     Indication: Prophylaxis

REACTIONS (1)
  - Autoimmune haemolytic anaemia [Recovering/Resolving]
